FAERS Safety Report 21052233 (Version 1)
Quarter: 2022Q3

REPORT INFORMATION
  Report Type: Spontaneous
  Country: JP (occurrence: JP)
  Receive Date: 20220707
  Receipt Date: 20220707
  Transmission Date: 20221027
  Serious: Yes (Death, Hospitalization, Other)
  Sender: FDA-Public Use
  Company Number: JP-ELI_LILLY_AND_COMPANY-JP202207002306

PATIENT
  Age: 83 Year
  Sex: Male

DRUGS (2)
  1. CYRAMZA [Suspect]
     Active Substance: RAMUCIRUMAB
     Indication: Hepatocellular carcinoma
     Route: 041
  2. DECADRON (DEXAMETHASONE SODIUM PHOSPHATE) [Concomitant]
     Active Substance: DEXAMETHASONE SODIUM PHOSPHATE

REACTIONS (7)
  - Malignant neoplasm progression [Fatal]
  - Pneumonia aspiration [Recovered/Resolved]
  - Cholangitis [Recovered/Resolved]
  - Aspiration [Unknown]
  - Pyrexia [Unknown]
  - Decreased appetite [Recovered/Resolved]
  - Hypokinesia [Unknown]
